FAERS Safety Report 13525469 (Version 1)
Quarter: 2017Q2

REPORT INFORMATION
  Report Type: Spontaneous
  Country: US (occurrence: US)
  Receive Date: 20170508
  Receipt Date: 20170508
  Transmission Date: 20170830
  Serious: No
  Sender: FDA-Public Use
  Company Number: US-ROCHE-1142023

PATIENT
  Age: 66 Year
  Sex: Male

DRUGS (3)
  1. MORPHINE [Concomitant]
     Active Substance: MORPHINE
     Indication: HEADACHE
     Route: 065
     Dates: start: 201104, end: 201204
  2. CODEIN. [Concomitant]
     Indication: HEADACHE
     Route: 065
     Dates: start: 201104, end: 201204
  3. AVASTIN [Suspect]
     Active Substance: BEVACIZUMAB
     Indication: NEOVASCULAR AGE-RELATED MACULAR DEGENERATION
     Dosage: 0.5 ML, 1.25 MG ,8 INJECTION UNTILL 2012
     Route: 065
     Dates: start: 20110808, end: 20120319

REACTIONS (6)
  - Migraine [Unknown]
  - Eye haemorrhage [Unknown]
  - Hypoglycaemia [Unknown]
  - Eye pain [Recovered/Resolved]
  - Weight decreased [Unknown]
  - Impaired healing [Unknown]

NARRATIVE: CASE EVENT DATE: 20110809
